FAERS Safety Report 25962738 (Version 1)
Quarter: 2025Q4

REPORT INFORMATION
  Report Type: Spontaneous
  Country: US (occurrence: None)
  Receive Date: 20251026
  Receipt Date: 20251026
  Transmission Date: 20260117
  Serious: No
  Sender: FDA-CTU
  Company Number: None

PATIENT
  Age: 55 Year
  Sex: Female
  Weight: 119.25 kg

DRUGS (12)
  1. BAQSIMI [Suspect]
     Active Substance: GLUCAGON
     Indication: Diabetes mellitus
     Dosage: OTHER QUANTITY : 1 INHALATION(S);?OTHER FREQUENCY : N/A;?
     Route: 045
     Dates: start: 20251026
  2. GABAPENTIN [Concomitant]
     Active Substance: GABAPENTIN
  3. TRAZODONE [Concomitant]
     Active Substance: TRAZODONE HYDROCHLORIDE
  4. METOPROLOL [Concomitant]
     Active Substance: METOPROLOL
  5. LOSARTAN [Concomitant]
     Active Substance: LOSARTAN
  6. ezetimine [Concomitant]
  7. UNITHROID [Concomitant]
     Active Substance: LEVOTHYROXINE SODIUM
  8. REPATHA [Concomitant]
     Active Substance: EVOLOCUMAB
  9. ATORVASTATIN [Concomitant]
     Active Substance: ATORVASTATIN
  10. INSULIN NOS [Concomitant]
     Active Substance: INSULIN NOS
  11. PANTOPRAZOLE [Concomitant]
     Active Substance: PANTOPRAZOLE
  12. TYLENOL EXTRA STRENGTH [Concomitant]
     Active Substance: ACETAMINOPHEN

REACTIONS (9)
  - Expired product administered [None]
  - Blood glucose decreased [None]
  - Hyperhidrosis [None]
  - Visual impairment [None]
  - Nasal discomfort [None]
  - Headache [None]
  - Rhinorrhoea [None]
  - Lacrimation increased [None]
  - Eye pain [None]

NARRATIVE: CASE EVENT DATE: 20251026
